FAERS Safety Report 17993060 (Version 1)
Quarter: 2020Q3

REPORT INFORMATION
  Report Type: Spontaneous
  Country: US (occurrence: US)
  Receive Date: 20200707
  Receipt Date: 20200707
  Transmission Date: 20201103
  Serious: No
  Sender: FDA-Public Use
  Company Number: US-ROCHE-2495928

PATIENT
  Age: 68 Year
  Sex: Female
  Weight: 51.2 kg

DRUGS (12)
  1. GOCOVRI [Suspect]
     Active Substance: AMANTADINE
     Indication: DYSKINESIA
     Dosage: 1 DAY AT NIGHT
     Route: 048
     Dates: start: 20190910, end: 20191011
  2. NEUPRO [Concomitant]
     Active Substance: ROTIGOTINE
  3. CELLCEPT [Suspect]
     Active Substance: MYCOPHENOLATE MOFETIL\MYCOPHENOLATE MOFETIL HYDROCHLORIDE
     Indication: DYSKINESIA
     Route: 048
     Dates: start: 201909
  4. NIFEDIPINE. [Suspect]
     Active Substance: NIFEDIPINE
     Route: 048
     Dates: start: 201909
  5. ALPHA LIPOIC ACID [Concomitant]
     Active Substance: .ALPHA.-LIPOIC ACID
  6. MAGNESIUM [Concomitant]
     Active Substance: MAGNESIUM
  7. MELATONIN [Concomitant]
     Active Substance: MELATONIN
  8. NIFEDIPINE. [Suspect]
     Active Substance: NIFEDIPINE
     Indication: DYSKINESIA
     Route: 048
     Dates: start: 20190929
  9. RYTARY [Suspect]
     Active Substance: CARBIDOPA\LEVODOPA
     Indication: PRODUCT USED FOR UNKNOWN INDICATION
     Route: 048
     Dates: start: 201909
  10. CARBIDOPA. [Concomitant]
     Active Substance: CARBIDOPA
     Route: 065
  11. CLONAZEPAM. [Concomitant]
     Active Substance: CLONAZEPAM
  12. GOCOVRI [Suspect]
     Active Substance: AMANTADINE
     Route: 048
     Dates: start: 20191111

REACTIONS (12)
  - Abnormal dreams [Unknown]
  - Dyspnoea [Unknown]
  - Sleep disorder [Unknown]
  - Depression [Unknown]
  - Secretion discharge [Unknown]
  - Dystonia [Unknown]
  - Memory impairment [Unknown]
  - Nasal congestion [Unknown]
  - Disturbance in attention [Unknown]
  - Visual impairment [Unknown]
  - On and off phenomenon [Unknown]
  - Periorbital swelling [Unknown]

NARRATIVE: CASE EVENT DATE: 201909
